FAERS Safety Report 4580003-7 (Version None)
Quarter: 2005Q1

REPORT INFORMATION
  Report Type: 
  Country: None (occurrence: None)
  Receive Date: 20050214
  Receipt Date: 20050203
  Transmission Date: 20050727
  Serious: Yes (Hospitalization)
  Sender: FDA-Public Use
  Company Number: JP-JNJFOC-20050201739

PATIENT
  Sex: Female

DRUGS (4)
  1. RISPERDAL [Suspect]
     Route: 049
  2. RISPERDAL [Suspect]
     Indication: SCHIZOPHRENIA
     Route: 049
  3. CHLORPROMAZINE HYDROCHLORIDE [Concomitant]
     Route: 049
  4. CHLORPROMAZINE HYDROCHLORIDE [Concomitant]
     Route: 049

REACTIONS (3)
  - AKATHISIA [None]
  - ILEUS [None]
  - SCHIZOPHRENIA [None]
